FAERS Safety Report 12836272 (Version 1)
Quarter: 2016Q4

REPORT INFORMATION
  Report Type: Spontaneous
  Country: FR (occurrence: FR)
  Receive Date: 20161011
  Receipt Date: 20161011
  Transmission Date: 20170207
  Serious: Yes (Other)
  Sender: FDA-Public Use
  Company Number: FR-HORIZON-BUP-0104-2016

PATIENT
  Sex: Female

DRUGS (1)
  1. AMMONAPS [Suspect]
     Active Substance: SODIUM PHENYLBUTYRATE
     Indication: ARGININOSUCCINATE SYNTHETASE DEFICIENCY

REACTIONS (3)
  - Exposure during pregnancy [Unknown]
  - Pregnancy with implant contraceptive [Unknown]
  - Abortion [Unknown]
